FAERS Safety Report 24859639 (Version 1)
Quarter: 2025Q1

REPORT INFORMATION
  Report Type: Spontaneous
  Country: US (occurrence: US)
  Receive Date: 20250119
  Receipt Date: 20250119
  Transmission Date: 20250409
  Serious: No
  Sender: Unknown Manufacturer
  Company Number: US-862174955-ML2025-00193

PATIENT
  Age: 81 Year
  Sex: Male
  Weight: 86 kg

DRUGS (4)
  1. DORZOLAMIDE HYDROCHLORIDE AND TIMOLOL MALEATE OPHTHALMIC SOLUTION [Suspect]
     Active Substance: DORZOLAMIDE HYDROCHLORIDE\TIMOLOL MALEATE
     Indication: Intraocular pressure increased
     Route: 047
     Dates: start: 202412
  2. BENZODIAZEPINE [Concomitant]
     Active Substance: BENZODIAZEPINE
     Indication: Nervous system disorder
  3. GABAPENTIN [Concomitant]
     Active Substance: GABAPENTIN
     Indication: Nervous system disorder
  4. TRAMADOL [Concomitant]
     Active Substance: TRAMADOL
     Indication: Nervous system disorder

REACTIONS (8)
  - Muscle tightness [Unknown]
  - Myalgia [Unknown]
  - Dyspnoea [Unknown]
  - Eye irritation [Unknown]
  - Condition aggravated [Unknown]
  - Dizziness [Unknown]
  - Vision blurred [Unknown]
  - Disorientation [Unknown]

NARRATIVE: CASE EVENT DATE: 20241201
